FAERS Safety Report 21898185 (Version 1)
Quarter: 2023Q1

REPORT INFORMATION
  Report Type: Spontaneous
  Country: DE (occurrence: DE)
  Receive Date: 20230123
  Receipt Date: 20230123
  Transmission Date: 20230417
  Serious: No
  Sender: FDA-Public Use
  Company Number: DE-TRIS PHARMA, INC.-23DE010658

PATIENT

DRUGS (4)
  1. IBUPROFEN [Suspect]
     Active Substance: IBUPROFEN
     Indication: Patent ductus arteriosus
     Dosage: UNK
  2. NITRIC OXIDE [Concomitant]
     Active Substance: NITRIC OXIDE
     Indication: Vasodilation procedure
     Dosage: UNK
     Route: 055
  3. SILDENAFIL [Concomitant]
     Active Substance: SILDENAFIL
     Indication: Vasodilation procedure
     Dosage: UNK
     Route: 042
  4. INDOMETHACIN [Concomitant]
     Active Substance: INDOMETHACIN
     Indication: Patent ductus arteriosus
     Dosage: UNK

REACTIONS (1)
  - Drug ineffective for unapproved indication [Unknown]
